FAERS Safety Report 5807339-3 (Version None)
Quarter: 2008Q3

REPORT INFORMATION
  Report Type: 
  Country: None (occurrence: None)
  Receive Date: 20080709
  Receipt Date: 20080709
  Transmission Date: 20090109
  Serious: No
  Sender: FDA-Public Use
  Company Number: None

PATIENT
  Age: 52 Year
  Sex: Female
  Weight: 65.7716 kg

DRUGS (1)
  1. CIPROFLOXACIN HCL [Suspect]
     Indication: SHIGELLA INFECTION
     Dosage: AS PRESCRIBED
     Dates: start: 19940810, end: 19940825

REACTIONS (1)
  - FIBROMYALGIA [None]
